FAERS Safety Report 5097453-5 (Version None)
Quarter: 2006Q3

REPORT INFORMATION
  Report Type: 
  Country: None (occurrence: None)
  Receive Date: 20060901
  Receipt Date: 20060824
  Transmission Date: 20061208
  Serious: Yes (Death, Hospitalization)
  Sender: FDA-Public Use
  Company Number: HQWYE971125AUG06

PATIENT
  Age: 44 Year
  Sex: Male
  Weight: 85.3 kg

DRUGS (12)
  1. ADVIL [Suspect]
     Indication: SCROTAL PAIN
     Dosage: ^ON OCCASION^, ORAL
     Route: 048
     Dates: start: 20060501, end: 20060101
  2. ALEVE [Suspect]
     Indication: SCROTAL PAIN
     Dosage: ^ON OCCASION^, ORAL
     Route: 048
     Dates: start: 20060501, end: 20060101
  3. AZATHIOPRINE [Suspect]
     Indication: ARTHRITIS
     Dosage: SEE IMAGE
     Route: 048
     Dates: end: 20050801
  4. AZATHIOPRINE [Suspect]
     Indication: COLITIS ULCERATIVE
     Dosage: SEE IMAGE
     Route: 048
     Dates: end: 20050801
  5. AZATHIOPRINE [Suspect]
     Indication: ARTHRITIS
     Dosage: SEE IMAGE
     Route: 048
     Dates: start: 20050801, end: 20060101
  6. AZATHIOPRINE [Suspect]
     Indication: COLITIS ULCERATIVE
     Dosage: SEE IMAGE
     Route: 048
     Dates: start: 20050801, end: 20060101
  7. BALSALAZIDE DISODIUM [Suspect]
     Indication: COLITIS ULCERATIVE
  8. DOXYCYCLINE [Suspect]
     Indication: SCROTAL INFECTION
     Dates: start: 20060501, end: 20060101
  9. REMICADE [Suspect]
     Indication: COLITIS ULCERATIVE
     Dosage: SEE IMAGE
     Route: 042
     Dates: start: 20060307, end: 20060307
  10. REMICADE [Suspect]
     Indication: COLITIS ULCERATIVE
     Dosage: SEE IMAGE
     Route: 042
     Dates: start: 20060321, end: 20060321
  11. REMICADE [Suspect]
     Indication: COLITIS ULCERATIVE
     Dosage: SEE IMAGE
     Route: 042
     Dates: start: 20060418, end: 20060418
  12. ACETAMINOPHEN [Suspect]
     Indication: SCROTAL PAIN
     Dosage: AT LEAST 6 GRAMS A DAY FOR 7 TO 10 DAYS, ORAL
     Route: 048
     Dates: start: 20060501, end: 20060101

REACTIONS (21)
  - ABDOMINAL DISTENSION [None]
  - ABDOMINAL PAIN LOWER [None]
  - ACTIVATED PARTIAL THROMBOPLASTIN TIME PROLONGED [None]
  - ASCITES [None]
  - AZOTAEMIA [None]
  - BLOOD ALBUMIN DECREASED [None]
  - BLOOD CREATINE PHOSPHOKINASE INCREASED [None]
  - BLOOD PRESSURE INCREASED [None]
  - DIALYSIS [None]
  - HAEMOGLOBIN DECREASED [None]
  - HEPATIC FAILURE [None]
  - MEMORY IMPAIRMENT [None]
  - OEDEMA PERIPHERAL [None]
  - ORCHITIS [None]
  - PERIPHERAL COLDNESS [None]
  - PLATELET COUNT DECREASED [None]
  - PROTHROMBIN TIME PROLONGED [None]
  - RENAL FAILURE [None]
  - SCROTAL SWELLING [None]
  - SERUM FERRITIN INCREASED [None]
  - TENDERNESS [None]
